FAERS Safety Report 5480011-8 (Version None)
Quarter: 2007Q4

REPORT INFORMATION
  Report Type: 
  Country: None (occurrence: None)
  Receive Date: 20071008
  Receipt Date: 20071004
  Transmission Date: 20080405
  Serious: Yes (Death)
  Sender: FDA-Public Use
  Company Number: GB-GENENTECH-248977

PATIENT
  Sex: Female
  Weight: 56.8 kg

DRUGS (2)
  1. RITUXIMAB [Suspect]
     Indication: ANTI-NEUTROPHIL CYTOPLASMIC ANTIBODY POSITIVE VASCULITIS
     Dosage: 562 MG, 1/WEEK
     Dates: start: 20070308
  2. RITUXIMAB [Suspect]
     Dosage: 600 MG, 1/WEEK

REACTIONS (3)
  - CLOSTRIDIAL INFECTION [None]
  - DEATH [None]
  - RENAL IMPAIRMENT [None]
